FAERS Safety Report 5227776-8 (Version None)
Quarter: 2007Q1

REPORT INFORMATION
  Report Type: 
  Country: None (occurrence: None)
  Receive Date: 20070202
  Receipt Date: 20070125
  Transmission Date: 20070707
  Serious: Yes (Hospitalization)
  Sender: FDA-Public Use
  Company Number: FR-PFIZER INC-2007007325

PATIENT
  Sex: Female

DRUGS (2)
  1. ZOLOFT [Suspect]
     Indication: DEPRESSION
  2. MORPHINE SULFATE [Concomitant]
     Indication: SPINAL COLUMN STENOSIS
     Route: 062

REACTIONS (4)
  - ARRHYTHMIA [None]
  - INCREASED APPETITE [None]
  - TACHYCARDIA [None]
  - WEIGHT INCREASED [None]
